FAERS Safety Report 8251555-0 (Version None)
Quarter: 2012Q1

REPORT INFORMATION
  Report Type: 
  Country: None (occurrence: None)
  Receive Date: 20120328
  Receipt Date: 20120307
  Transmission Date: 20120608
  Serious: No
  Sender: FDA-Public Use
  Company Number: C-12-018

PATIENT
  Age: 62 Year
  Sex: Female
  Weight: 80.7403 kg

DRUGS (2)
  1. PREMPRO [Concomitant]
  2. PHENTERMINE HYDROCHLORIDE [Suspect]
     Indication: WEIGHT CONTROL
     Dosage: 37.5MG-QD OR PRN-ORAL
     Route: 048
     Dates: start: 20120305

REACTIONS (1)
  - DRUG INEFFECTIVE [None]
